FAERS Safety Report 7250704-0 (Version None)
Quarter: 2011Q1

REPORT INFORMATION
  Report Type: 
  Country: None (occurrence: None)
  Receive Date: 20110128
  Receipt Date: 20110114
  Transmission Date: 20110831
  Serious: Yes (Hospitalization, Other)
  Sender: FDA-Public Use
  Company Number: PHHO2011DE01428

PATIENT
  Sex: Male

DRUGS (4)
  1. NO TREATMENT RECEIVED [Suspect]
     Dosage: NO TREATMENT
  2. SANDIMMUNE [Suspect]
     Indication: RENAL TRANSPLANT
     Dosage: 150 MG, BID
     Route: 048
     Dates: start: 20091228, end: 20110105
  3. MYFORTIC [Suspect]
     Indication: RENAL TRANSPLANT
     Dosage: 1440 MG, BID
     Route: 048
     Dates: start: 20091228, end: 20110105
  4. URBASON [Concomitant]
     Indication: RENAL TRANSPLANT
     Dosage: 8 MG, BID
     Route: 048
     Dates: start: 20091228, end: 20110105

REACTIONS (4)
  - FALL [None]
  - RENAL NEOPLASM [None]
  - MONOPLEGIA [None]
  - CEREBROVASCULAR ACCIDENT [None]
